FAERS Safety Report 10112054 (Version 1)
Quarter: 2014Q2

REPORT INFORMATION
  Report Type: Spontaneous
  Country: NL (occurrence: NL)
  Receive Date: 20140425
  Receipt Date: 20140425
  Transmission Date: 20141212
  Serious: Yes (Hospitalization)
  Sender: FDA-Public Use
  Company Number: NL-IPSEN BIOPHARMACEUTICALS, INC.-2014-2014

PATIENT
  Age: 44 Year
  Sex: Male

DRUGS (2)
  1. SOMATULINE AUTOSOLUTION 120MG [Suspect]
     Indication: HYPERTHYROIDISM
     Dosage: 120 MG
     Route: 058
     Dates: start: 20120904
  2. SOMATULINE AUTOSOLUTION 120MG [Suspect]
     Indication: OFF LABEL USE

REACTIONS (2)
  - Cholecystectomy [Recovered/Resolved]
  - Inappropriate schedule of drug administration [Unknown]
